FAERS Safety Report 7976353 (Version 3)
Quarter: 2014Q2

REPORT INFORMATION
  Report Type: Spontaneous
  Country: US (occurrence: US)
  Receive Date: 20110606
  Receipt Date: 20140415
  Transmission Date: 20141212
  Serious: Yes (Other)
  Sender: FDA-Public Use
  Company Number: US-ASTRAZENECA-2010SE20175

PATIENT
  Age: 58 Year
  Sex: Female

DRUGS (34)
  1. LIDODERM [Suspect]
     Route: 065
  2. PULMICORT [Suspect]
     Dosage: GENERIC
     Route: 055
  3. PULMICORT [Suspect]
     Dosage: 0.50 MG IN 2 ML UNK
     Route: 055
  4. PULMICORT [Suspect]
     Dosage: 1.00 MG IN 2 ML UNK
     Route: 055
  5. PRILOSEC [Suspect]
     Route: 048
  6. SEROQUEL [Suspect]
     Route: 048
  7. CRESTOR [Suspect]
     Route: 048
  8. AMBIEN [Concomitant]
     Dosage: 10 MG QN
  9. ATROVENT [Concomitant]
     Dosage: 18 MCG AEROSOLW/ADAPTER BID
  10. AZMACORT [Concomitant]
     Dosage: 100 MCG AEROSOL W/ADAPTER BID
  11. DALLERGY [Concomitant]
     Dosage: 20-8-2.5 MG BID SUSTAINED RELEASE 12 HR 5 G
  12. NEURONTIN [Concomitant]
     Dosage: 100 MG 3 CAPSULES QID
  13. SYNTHROID [Concomitant]
  14. PROTONIX [Concomitant]
  15. RHINOCORT [Concomitant]
     Route: 045
  16. SAVELLA [Concomitant]
  17. THEOPHYLLINE [Concomitant]
  18. TRICOR [Concomitant]
  19. VITAMIN D3 [Concomitant]
  20. LEVAQUIN [Concomitant]
     Dosage: 500 MG QM
  21. MOMETASONE FUROATE [Concomitant]
  22. AXELAR [Concomitant]
     Dosage: 400 MG
  23. ZOVIRAX [Concomitant]
  24. BLUEBERRY DROPS [Concomitant]
     Dosage: 1 ML WITH WATER DAILY
  25. COENZYME Q 10 [Concomitant]
     Dosage: 100 MG 1 TABLET SID
  26. CORAL CALCIUM [Concomitant]
     Dosage: 500 MG QAM WITH FOOD
  27. FISH OIL [Concomitant]
  28. FOLIC ACID [Concomitant]
     Dosage: 400 MCG SID
  29. GARLIC SUPPLEMENT [Concomitant]
     Dosage: 650 MG SID
  30. LECITHIN [Concomitant]
     Dosage: 1200 MG SID
  31. SHARK CARTILAGE [Concomitant]
  32. VITAMIN B COMPLETE [Concomitant]
     Dosage: BID WITH FOOD
  33. VITAMIN C [Concomitant]
     Dosage: 450 MG WITH FOOD
  34. VITAMIN E [Concomitant]
     Dosage: 400 IU QAM WITH FOOD

REACTIONS (11)
  - Loss of consciousness [Unknown]
  - Feeling jittery [Unknown]
  - Dyspnoea [Unknown]
  - Asthma [Unknown]
  - Myalgia [Unknown]
  - Arthralgia [Unknown]
  - Swollen tongue [Unknown]
  - Disorientation [Unknown]
  - Drug ineffective [Unknown]
  - Off label use [Unknown]
  - Drug dispensing error [Unknown]
